FAERS Safety Report 6590842-9 (Version None)
Quarter: 2010Q1

REPORT INFORMATION
  Report Type: 
  Country: None (occurrence: None)
  Receive Date: 20100219
  Receipt Date: 20100211
  Transmission Date: 20100710
  Serious: Yes (Hospitalization, Other)
  Sender: FDA-Public Use
  Company Number: US-PFIZER INC-2009314731

PATIENT
  Sex: Male
  Weight: 113.4 kg

DRUGS (7)
  1. LIPITOR [Suspect]
     Indication: CORONARY ARTERY BYPASS
     Dosage: 10 MG, DAILY
     Route: 048
     Dates: start: 20041015, end: 20091218
  2. LIPITOR [Suspect]
     Indication: CORONARY ARTERY DISEASE
  3. LIPITOR [Suspect]
     Indication: BLOOD CHOLESTEROL INCREASED
  4. DRONEDARONE [Suspect]
     Indication: ATRIAL FLUTTER
     Dosage: 400 MG, 2X/DAY
     Route: 048
     Dates: start: 20091109, end: 20091228
  5. WARFARIN [Concomitant]
     Dosage: 3 MG, UNK
     Route: 048
     Dates: start: 20041015, end: 20091218
  6. TOPROL-XL [Concomitant]
     Dosage: 25 MG, UNK
     Route: 048
     Dates: start: 20041015
  7. ACETYLSALICYLIC ACID [Concomitant]
     Dosage: 81 MG, UNK
     Route: 048
     Dates: start: 20041015

REACTIONS (3)
  - DRUG INEFFECTIVE [None]
  - FALL [None]
  - TENDON RUPTURE [None]
